FAERS Safety Report 4800059-3 (Version None)
Quarter: 2005Q4

REPORT INFORMATION
  Report Type: 
  Country: None (occurrence: None)
  Receive Date: 20051017
  Receipt Date: 20051006
  Transmission Date: 20060501
  Serious: Yes (Other)
  Sender: FDA-Public Use
  Company Number: US-JNJFOC-20050901757

PATIENT
  Sex: Female
  Weight: 73.48 kg

DRUGS (6)
  1. REMICADE [Suspect]
     Route: 042
  2. REMICADE [Suspect]
     Route: 042
  3. REMICADE [Suspect]
     Indication: RHEUMATOID ARTHRITIS
     Route: 042
  4. PREDNISONE [Concomitant]
     Dosage: FOR GREATER THAN 6 MONTHS
  5. METHOTREXATE [Concomitant]
     Dosage: FOR LESS THAN 3 MONTHS
  6. NSAIDS [Concomitant]
     Dosage: FOR LESS THAN 3 MONTHS

REACTIONS (2)
  - CORONARY ARTERY OCCLUSION [None]
  - DYSPNOEA [None]
